FAERS Safety Report 5931584-X (Version None)
Quarter: 2008Q4

REPORT INFORMATION
  Report Type: 
  Country: None (occurrence: None)
  Receive Date: 20081027
  Receipt Date: 20081017
  Transmission Date: 20090506
  Serious: Yes (Disabling)
  Sender: FDA-Public Use
  Company Number: FR-JNJFOC-20081004953

PATIENT
  Age: 56 Year
  Sex: Female

DRUGS (3)
  1. DOXORUBICIN HCL [Suspect]
     Indication: BREAST CANCER
     Dosage: DOSE 2.9296 MG
     Route: 042
  2. AVASTIN [Suspect]
     Indication: BREAST CANCER
     Dosage: DOSE 0.7143 MG/KG
     Route: 042
  3. ZOMETA [Suspect]
     Indication: METASTASES TO BONE
     Dosage: DOSE 0.0357
     Route: 042

REACTIONS (3)
  - INFECTION [None]
  - MOUTH ULCERATION [None]
  - OSTEONECROSIS [None]
